FAERS Safety Report 10904834 (Version 1)
Quarter: 2015Q1

REPORT INFORMATION
  Report Type: Spontaneous
  Country: US (occurrence: None)
  Receive Date: 20150107
  Receipt Date: 20150107
  Transmission Date: 20150721
  Serious: No
  Sender: FDA-Public Use
  Company Number: 2014TUS012599

PATIENT
  Age: 47 Year
  Sex: Female
  Weight: 133.8 kg

DRUGS (6)
  1. LEVOTHYROXINE [Concomitant]
     Active Substance: LEVOTHYROXINE
  2. CITALOPRAM [Concomitant]
     Active Substance: CITALOPRAM HYDROBROMIDE
  3. BENAZEPRIL [Concomitant]
     Active Substance: BENAZEPRIL\BENAZEPRIL HYDROCHLORIDE
  4. CONTRAVE [Suspect]
     Active Substance: BUPROPION HYDROCHLORIDE\NALTREXONE HYDROCHLORIDE
     Indication: OBESITY
     Dosage: 1 TABLET, QD, ORAL
     Route: 048
     Dates: start: 20141125
  5. SUDAFED /00076302/ (PSEUDOEPHEDRINE HYDROCHLORIDE) [Concomitant]
  6. ALLEGRA (FEXOFENADINE HYDROCHLORIDE) [Concomitant]

REACTIONS (3)
  - Restlessness [None]
  - Hyperhidrosis [None]
  - Feeling cold [None]

NARRATIVE: CASE EVENT DATE: 20141125
